FAERS Safety Report 6278116-7 (Version None)
Quarter: 2009Q3

REPORT INFORMATION
  Report Type: 
  Country: None (occurrence: None)
  Receive Date: 20090722
  Receipt Date: 20090720
  Transmission Date: 20100115
  Serious: Yes (Other)
  Sender: FDA-Public Use
  Company Number: DE-PFIZER INC-2009223215

PATIENT
  Age: 30 Year

DRUGS (1)
  1. VIAGRA [Suspect]
     Indication: ERECTILE DYSFUNCTION
     Dosage: 10 MG, 2-3 TIMES PER WEEK
     Route: 048

REACTIONS (2)
  - ARRHYTHMIA [None]
  - VENTRICULAR EXTRASYSTOLES [None]
